FAERS Safety Report 10081283 (Version 1)
Quarter: 2014Q2

REPORT INFORMATION
  Report Type: Spontaneous
  Country: US (occurrence: US)
  Receive Date: 20140416
  Receipt Date: 20140416
  Transmission Date: 20141212
  Serious: No
  Sender: FDA-Public Use
  Company Number: US-PFIZER INC-2014103732

PATIENT
  Age: 79 Year
  Sex: Female
  Weight: 60.77 kg

DRUGS (2)
  1. VERAPAMIL HCL [Suspect]
     Indication: HYPERTENSION
     Dosage: 240 MG, 2X/DAY
     Dates: start: 2011, end: 2011
  2. ARMOUR THYROID [Concomitant]
     Indication: THYROIDECTOMY
     Dosage: 160 MG IN MORNING AND 130 MG AT BED TIME],2X/DAY

REACTIONS (1)
  - Drug ineffective [Unknown]
